FAERS Safety Report 23652204 (Version 1)
Quarter: 2024Q1

REPORT INFORMATION
  Report Type: Spontaneous
  Country: AT (occurrence: AT)
  Receive Date: 20240320
  Receipt Date: 20240320
  Transmission Date: 20240410
  Serious: Yes (Hospitalization, Other)
  Sender: FDA-Public Use
  Company Number: AT-AMGEN-AUTNI2023192538

PATIENT
  Age: 54 Year
  Sex: Female
  Weight: 75 kg

DRUGS (61)
  1. XGEVA [Suspect]
     Active Substance: DENOSUMAB
     Indication: Product used for unknown indication
     Dosage: 120 MILLIGRAM, QMO, LAST ADM 30/AUG/2019
     Route: 058
     Dates: start: 20190425, end: 20190830
  2. XGEVA [Suspect]
     Active Substance: DENOSUMAB
     Dosage: 120 MILLIGRAM, QMO
     Route: 058
     Dates: start: 20191219
  3. HERCEPTIN [Suspect]
     Active Substance: TRASTUZUMAB
     Indication: HER2 positive breast cancer
     Dosage: 378 MILLIGRAM, Q3WK
     Route: 042
     Dates: start: 20181214, end: 20190109
  4. HERCEPTIN [Suspect]
     Active Substance: TRASTUZUMAB
     Dosage: 384 MILLIGRAM, Q3WK
     Route: 042
     Dates: start: 20180515, end: 20180605
  5. HERCEPTIN [Suspect]
     Active Substance: TRASTUZUMAB
     Dosage: 408 MILLIGRAM, Q3WK
     Route: 042
     Dates: start: 20180423, end: 20180423
  6. HERCEPTIN [Suspect]
     Active Substance: TRASTUZUMAB
     Dosage: 372 MILLIGRAM, Q3WK
     Route: 042
     Dates: start: 20180626, end: 20181010
  7. HERCEPTIN [Suspect]
     Active Substance: TRASTUZUMAB
     Dosage: 600 MILLIGRAM, Q3WK
     Route: 042
     Dates: start: 20180328, end: 20180328
  8. HERCEPTIN [Suspect]
     Active Substance: TRASTUZUMAB
     Dosage: 378 MILLIGRAM, Q3WK
     Route: 042
     Dates: start: 20181102, end: 20181123
  9. TAXOL [Suspect]
     Active Substance: PACLITAXEL
     Indication: HER2 positive breast cancer
     Dosage: 147.76 MILLIGRAM, QWK
     Route: 042
     Dates: start: 20180328, end: 20180409
  10. KADCYLA [Suspect]
     Active Substance: ADO-TRASTUZUMAB EMTANSINE
     Indication: HER2 positive breast cancer
     Dosage: 230.4 MILLIGRAM, Q3WK, DOSE ONMOST RECENT DOSE PRIOR TO THE EVENT 28/JUN/2019
     Route: 042
     Dates: start: 20190131, end: 20190517
  11. KADCYLA [Suspect]
     Active Substance: ADO-TRASTUZUMAB EMTANSINE
     Dosage: 230.4 MILLIGRAM, Q3WK/ DOSE ON 17/MAY/2019MOST RECENT DOSE PRIOR TO THE EVENT 11/MAR/2020
     Route: 042
     Dates: start: 20210228
  12. KADCYLA [Suspect]
     Active Substance: ADO-TRASTUZUMAB EMTANSINE
     Dosage: 216 MILLIGRAM, Q3WK
     Route: 042
     Dates: start: 20190628, end: 20190830
  13. TREXALL [Suspect]
     Active Substance: METHOTREXATE SODIUM
     Indication: HER2 positive breast cancer
     Dosage: 2.5 MILLIGRAM, BID, LAST DOSE 09-MAR-2020
     Route: 048
     Dates: start: 20200219
  14. NAVELBINE [Suspect]
     Active Substance: VINORELBINE TARTRATE
     Indication: HER2 positive breast cancer
     Dosage: 50 MILLIGRAM, RECENT DOSE: 28/OCT/2019
     Route: 048
     Dates: start: 20191011, end: 20191025
  15. XELODA [Suspect]
     Active Substance: CAPECITABINE
     Indication: HER2 positive breast cancer
     Dosage: 500 MILLIGRAM OTHER
     Route: 048
     Dates: start: 20191219, end: 20200129
  16. XELODA [Suspect]
     Active Substance: CAPECITABINE
     Dosage: 500 MILLIGRAM, OTHER MOST RECENT DOSE PRIOR TO THE EVENT: 19/DEC/2019
     Route: 048
     Dates: start: 20191126, end: 20191218
  17. ONTRUZANT [Suspect]
     Active Substance: TRASTUZUMAB-DTTB
     Indication: HER2 positive breast cancer
     Dosage: 378 MILLIGRAM, Q3WK
     Route: 042
     Dates: start: 20181214, end: 20190109
  18. ONTRUZANT [Suspect]
     Active Substance: TRASTUZUMAB-DTTB
     Dosage: 378 MILLIGRAM, Q3WK, MOST RECENT DOSE WAS RECEIVED ON 09/JAN/2019.
     Route: 042
     Dates: start: 20181123
  19. CYTOXAN [Suspect]
     Active Substance: CYCLOPHOSPHAMIDE
     Indication: HER2 positive breast cancer
     Dosage: 50 MILLIGRAM, QD, MOST RECENT DOSE PRIOR TO AE 09/MAR/2020
     Route: 048
     Dates: start: 20200219
  20. NERATINIB [Suspect]
     Active Substance: NERATINIB
     Indication: HER2 positive breast cancer
     Dosage: 1440 MILLIGRAM, QD
     Route: 048
     Dates: start: 20200108, end: 20200118
  21. NERATINIB [Suspect]
     Active Substance: NERATINIB
     Dosage: 1440 MILLIGRAM, QD, FREQUENCY: O.D. - ONCE DAILY MOST RECENT DOSE PRIOR TO THE EVENT: 19/JAN/2020/ L
     Route: 048
     Dates: start: 20200119
  22. ABRAXANE [Suspect]
     Active Substance: PACLITAXEL
     Indication: HER2 positive breast cancer
     Dosage: 177.17 MILLIGRAM, QWK
     Route: 042
     Dates: start: 20180522, end: 20180529
  23. ABRAXANE [Suspect]
     Active Substance: PACLITAXEL
     Dosage: 172.67 MILLIGRAM, QWK/ LAST DOSE ADMINISTERED: 16-JAN-2019
     Route: 042
     Dates: start: 20190116
  24. ABRAXANE [Suspect]
     Active Substance: PACLITAXEL
     Dosage: 172.67 MILLIGRAM, QWK
     Route: 042
     Dates: start: 20180515, end: 20180515
  25. ABRAXANE [Suspect]
     Active Substance: PACLITAXEL
     Dosage: 172.67 MILLIGRAM, QWK
     Route: 042
     Dates: start: 20190102, end: 20190102
  26. ABRAXANE [Suspect]
     Active Substance: PACLITAXEL
     Dosage: 170.35 MILLIGRAM, QWK
     Route: 042
     Dates: start: 20180626, end: 20180718
  27. ABRAXANE [Suspect]
     Active Substance: PACLITAXEL
     Dosage: 172.67 MILLIGRAM, QWK
     Route: 042
     Dates: start: 20180605, end: 20180605
  28. ABRAXANE [Suspect]
     Active Substance: PACLITAXEL
     Dosage: 171.51 MILLIGRAM, QWK
     Route: 042
     Dates: start: 20181207, end: 20181221
  29. ABRAXANE [Suspect]
     Active Substance: PACLITAXEL
     Dosage: 177.17 MILLIGRAM, QWK
     Route: 042
     Dates: start: 20180612, end: 20180619
  30. ABRAXANE [Suspect]
     Active Substance: PACLITAXEL
     Dosage: 171.51 MILLIGRAM, QWK
     Route: 042
     Dates: start: 20190109, end: 20190109
  31. ABRAXANE [Suspect]
     Active Substance: PACLITAXEL
     Dosage: 177.17 MILLIGRAM, QWK, FREQUENCY: WEEKLY MOST RECENT DOSE PRIOR TO THE EVENT: 26/JUN/2018
     Route: 042
     Dates: start: 20180416, end: 20180508
  32. ABRAXANE [Suspect]
     Active Substance: PACLITAXEL
     Dosage: 171.51 MILLIGRAM, QWK
     Route: 042
     Dates: start: 20181102, end: 20181123
  33. PERJETA [Suspect]
     Active Substance: PERTUZUMAB
     Indication: HER2 positive breast cancer
     Dosage: 840 MILLIGRAM, Q3WK, MOST RECENT DOSE PRIOR TO THE EVENT: 23/APR/2018, 14/DEC/2018, 11/OCT/2019
     Route: 042
     Dates: start: 20180328, end: 20180328
  34. PERJETA [Suspect]
     Active Substance: PERTUZUMAB
     Dosage: 420 MILLIGRAM, Q3WK
     Route: 042
     Dates: start: 20180423, end: 20181123
  35. PERJETA [Suspect]
     Active Substance: PERTUZUMAB
     Dosage: 420 MILLIGRAM, Q3WK/ LAST DOSE 09/JAN/2019
     Route: 042
     Dates: start: 20181214
  36. OCTENIDINE\PHENOXYETHANOL [Concomitant]
     Active Substance: OCTENIDINE\PHENOXYETHANOL
     Indication: Onycholysis
     Dosage: UNK LAST ADMINISTRATION 2018
     Dates: start: 20180725
  37. PANTOPRAZOLE SODIUM [Concomitant]
     Active Substance: PANTOPRAZOLE SODIUM
     Indication: Gastrointestinal disorder prophylaxis
     Dosage: 40 MILLIGRAM, QD
     Dates: start: 20191011
  38. DEXPANTHENOL\HYALURONATE SODIUM [Concomitant]
     Active Substance: DEXPANTHENOL\HYALURONATE SODIUM
     Indication: Conjunctivitis
     Dosage: UNK
     Dates: start: 20180619
  39. MYCOSTATIN [Concomitant]
     Active Substance: NYSTATIN
     Indication: Stomatitis
     Dosage: UNK
     Dates: start: 20191029, end: 20191104
  40. HYDROMORPHONE HYDROCHLORIDE [Concomitant]
     Active Substance: HYDROMORPHONE HYDROCHLORIDE
  41. CALCIUM CARBONATE\CHOLECALCIFEROL [Concomitant]
     Active Substance: CALCIUM CARBONATE\CHOLECALCIFEROL
     Dosage: UNK LAST ADMINISTRATION 10/04/2020
     Dates: start: 20190425
  42. NOVALGINA [Concomitant]
     Active Substance: ACETAMINOPHEN\CAFFEINE
     Indication: Product used for unknown indication
     Dosage: UNK
     Dates: start: 20200224, end: 20200410
  43. HYDROMORPHONE HYDROCHLORIDE [Concomitant]
     Active Substance: HYDROMORPHONE HYDROCHLORIDE
     Indication: Product used for unknown indication
     Dosage: UNK
     Dates: start: 20200311, end: 20200410
  44. HYDROMORPHONE HYDROCHLORIDE [Concomitant]
     Active Substance: HYDROMORPHONE HYDROCHLORIDE
     Dosage: UNK
     Dates: start: 20200228, end: 20200410
  45. HYDROMORPHONE HYDROCHLORIDE [Concomitant]
     Active Substance: HYDROMORPHONE HYDROCHLORIDE
     Dosage: UNK
     Dates: start: 20200228, end: 20200311
  46. LOPERAMIDE HYDROCHLORIDE [Concomitant]
     Active Substance: LOPERAMIDE HYDROCHLORIDE
     Indication: Product used for unknown indication
     Dosage: UNK
     Dates: start: 20200108, end: 20200113
  47. DEXPANTHENOL [Concomitant]
     Active Substance: DEXPANTHENOL
     Indication: Onycholysis
     Dosage: UNK
     Dates: start: 20180619, end: 201806
  48. ZOFRAN [Concomitant]
     Active Substance: ONDANSETRON HYDROCHLORIDE
     Dosage: UNK
  49. DEXAMETHASONE [Concomitant]
     Active Substance: DEXAMETHASONE
     Dosage: UNK
     Dates: start: 20190628, end: 20190830
  50. KYTRIL [Concomitant]
     Active Substance: GRANISETRON HYDROCHLORIDE
     Dosage: UNK
     Dates: start: 20190628, end: 20190830
  51. OCTENIDINE HYDROCHLORIDE [Concomitant]
     Active Substance: OCTENIDINE HYDROCHLORIDE
  52. DIMETHINDENE MALEATE [Concomitant]
     Active Substance: DIMETHINDENE MALEATE
     Indication: Prophylaxis
     Dosage: 4 MILLIGRAM, Q3WK
     Dates: start: 20181102, end: 20190109
  53. ASCORBIC ACID\CALCIUM PHOSPHATE\CHOLECALCIFEROL\CITRIC ACID MONOHYDRAT [Concomitant]
     Active Substance: ASCORBIC ACID\CALCIUM PHOSPHATE\CHOLECALCIFEROL\CITRIC ACID MONOHYDRATE
     Dosage: UNK
     Dates: start: 20180612, end: 20190425
  54. SOLU DACORTIN [Concomitant]
     Dosage: 50 MILLIGRAM
     Dates: start: 20180409, end: 20180409
  55. DEXABENE [Concomitant]
     Indication: Prophylaxis
     Dosage: 8 MILLIGRAM, QWK
     Dates: start: 20181102, end: 20190109
  56. RANITIDINE HYDROCHLORIDE [Concomitant]
     Active Substance: RANITIDINE HYDROCHLORIDE
     Indication: Prophylaxis
     Dosage: 50 MILLIGRAM, QWK
     Dates: start: 20180328, end: 20180409
  57. RANITIDINE HYDROCHLORIDE [Concomitant]
     Active Substance: RANITIDINE HYDROCHLORIDE
     Dosage: 50 MILLIGRAM, QWK
     Dates: start: 20180423, end: 20180801
  58. GENTAMICIN [Concomitant]
     Active Substance: GENTAMICIN
     Dosage: UNK, QID
     Dates: start: 20180626
  59. DIMETHINDENE [Concomitant]
     Active Substance: DIMETHINDENE
     Indication: Prophylaxis
     Dosage: 4 MILLIGRAM, Q3WK
     Dates: start: 20180423, end: 20180801
  60. DIMETHINDENE [Concomitant]
     Active Substance: DIMETHINDENE
     Dosage: 4 MILLIGRAM, QWK
     Dates: start: 20180328, end: 20180409
  61. NITROLINGUAL [Concomitant]
     Active Substance: NITROGLYCERIN
     Dosage: 1 PUFF
     Dates: start: 20180409, end: 20180409

REACTIONS (7)
  - Febrile neutropenia [Recovered/Resolved]
  - Dyspnoea [Recovered/Resolved]
  - Tumour pain [Recovered/Resolved]
  - C-reactive protein increased [Recovered/Resolved]
  - Diarrhoea [Recovered/Resolved]
  - Stomatitis [Recovered/Resolved]
  - Off label use [Unknown]

NARRATIVE: CASE EVENT DATE: 20191025
